FAERS Safety Report 8728532 (Version 6)
Quarter: 2014Q2

REPORT INFORMATION
  Report Type: Report from Study
  Country: CA (occurrence: CA)
  Receive Date: 20120817
  Receipt Date: 20140603
  Transmission Date: 20141212
  Serious: Yes (Hospitalization)
  Sender: FDA-Public Use
  Company Number: CA-EISAI INC-E7389-02721-CLI-CA

PATIENT
  Age: 71 Year
  Sex: Female
  Weight: 80 kg

DRUGS (2)
  1. E7389 (BOLD) [Suspect]
     Indication: BREAST CANCER
     Dosage: 1.4 MG/M2
     Route: 041
     Dates: start: 20120711, end: 20120718
  2. HYDROMORPHONE CONTIN [Concomitant]
     Indication: MUSCULOSKELETAL CHEST PAIN
     Route: 048
     Dates: end: 20120821

REACTIONS (2)
  - Pneumonia [Recovering/Resolving]
  - Febrile neutropenia [Recovered/Resolved]
